FAERS Safety Report 7229072-6 (Version None)
Quarter: 2011Q1

REPORT INFORMATION
  Report Type: 
  Country: None (occurrence: None)
  Receive Date: 20110117
  Receipt Date: 20110112
  Transmission Date: 20110831
  Serious: Yes (Death)
  Sender: FDA-Public Use
  Company Number: PHHY2011BR02645

PATIENT
  Sex: Male

DRUGS (5)
  1. MEMANTINE HYDROCHLORIDE [Concomitant]
     Indication: DEMENTIA ALZHEIMER'S TYPE
     Dosage: 2 DF, QD
     Route: 048
     Dates: start: 19990101
  2. STALEVO 100 [Suspect]
     Dosage: 1 DF, Q6H
     Dates: start: 20050101
  3. EXELON [Suspect]
     Indication: DEMENTIA ALZHEIMER'S TYPE
     Dosage: 18MG/10CM2
     Route: 062
  4. SERTRALINE [Concomitant]
     Indication: DEMENTIA ALZHEIMER'S TYPE
     Dosage: 2 DF, QD
     Dates: start: 19990101
  5. PROTOS (PROTOPORPHYRIN DISODIUM) [Concomitant]
     Indication: OSTEOPOROSIS
     Dosage: 1 DF, QD
     Route: 048

REACTIONS (6)
  - MULTI-ORGAN FAILURE [None]
  - PARKINSON'S DISEASE [None]
  - RESPIRATORY FAILURE [None]
  - PROSTATE CANCER [None]
  - RESPIRATORY ARREST [None]
  - DEMENTIA ALZHEIMER'S TYPE [None]
